FAERS Safety Report 8113211-9 (Version None)
Quarter: 2012Q1

REPORT INFORMATION
  Report Type: 
  Country: None (occurrence: None)
  Receive Date: 20120203
  Receipt Date: 20120123
  Transmission Date: 20120608
  Serious: Yes (Hospitalization, Other)
  Sender: FDA-Public Use
  Company Number: PHHY2012DE006559

PATIENT
  Sex: Male
  Weight: 99 kg

DRUGS (16)
  1. SERTRALINE HYDROCHLORIDE [Suspect]
     Indication: DEPRESSION
     Dosage: 100 MG, PER DAY
     Route: 048
     Dates: start: 20110713
  2. ANGIOTENSIN RECEPTOR BLOCKER [Concomitant]
  3. RASILEZ [Suspect]
     Indication: HYPERTENSION
     Dosage: 100 MG, PER DAY
     Route: 048
     Dates: start: 20081006
  4. RAMIPRIL [Concomitant]
     Indication: HYPERTENSION
     Dosage: 10 MG, PER DAY
     Route: 048
     Dates: start: 20100121
  5. NEBIVOLOL [Concomitant]
     Indication: CARDIAC FAILURE
  6. ANTIDEPRESSANTS [Concomitant]
  7. NEBIVOLOL [Concomitant]
     Indication: HYPERTENSION
     Dosage: 5 MG, PER DAY
     Route: 048
     Dates: start: 20100621
  8. CALCIUM CHANNEL BLOCKERS [Concomitant]
  9. STATINS [Concomitant]
  10. HYDROCHLOROTHIAZIDE [Suspect]
     Indication: HYPERTENSION
     Dosage: 25 MG/DAY
     Route: 048
     Dates: start: 20030321
  11. DIURETICS [Concomitant]
  12. VALSARTAN [Suspect]
     Indication: HYPERTENSION
     Dosage: 80 MG, PER DAY
     Route: 048
     Dates: start: 20110829
  13. DOXEPIN HCL [Suspect]
     Indication: DEPRESSION
     Dosage: 50 MG, PER DAY
     Route: 048
     Dates: start: 20101103
  14. AMLODIPINE [Concomitant]
     Indication: HYPERTENSION
     Dosage: 5 MG, PER DAY
     Route: 048
     Dates: start: 20100607
  15. PLATELET AGGREGATION INHIBITORS [Concomitant]
  16. BETA BLOCKING AGENTS [Concomitant]
     Dates: end: 20101122

REACTIONS (10)
  - ELECTROCARDIOGRAM QT PROLONGED [None]
  - GASTROOESOPHAGEAL REFLUX DISEASE [None]
  - CARDIAC FAILURE [None]
  - INSOMNIA [None]
  - DIABETES MELLITUS [None]
  - CONGESTIVE CARDIOMYOPATHY [None]
  - DIASTOLIC DYSFUNCTION [None]
  - PULMONARY HYPERTENSION [None]
  - MITRAL VALVE INCOMPETENCE [None]
  - BLOOD CREATININE INCREASED [None]
